FAERS Safety Report 5911218-0 (Version None)
Quarter: 2008Q4

REPORT INFORMATION
  Report Type: 
  Country: None (occurrence: None)
  Receive Date: 20081007
  Receipt Date: 20081001
  Transmission Date: 20090506
  Serious: Yes (Other)
  Sender: FDA-Public Use
  Company Number: BR-ASTRAZENECA-2008UW21407

PATIENT
  Sex: Male

DRUGS (1)
  1. SEROQUEL [Suspect]
     Dosage: 50MG
     Route: 048

REACTIONS (2)
  - FALL [None]
  - SYNCOPE [None]
